FAERS Safety Report 6886481-2 (Version None)
Quarter: 2010Q3

REPORT INFORMATION
  Report Type: 
  Country: None (occurrence: None)
  Receive Date: 20100730
  Receipt Date: 20100723
  Transmission Date: 20110219
  Serious: Yes (Other)
  Sender: FDA-Public Use
  Company Number: US-ASTRAZENECA-2009UW14366

PATIENT
  Age: 37 Year
  Sex: Female
  Weight: 104.3 kg

DRUGS (10)
  1. SEROQUEL [Suspect]
     Indication: BIPOLAR I DISORDER
     Route: 048
     Dates: start: 20020101
  2. SEROQUEL [Suspect]
     Indication: BIPOLAR DISORDER
     Route: 048
     Dates: start: 20020101
  3. SEROQUEL [Suspect]
     Route: 048
     Dates: start: 20080709
  4. SEROQUEL [Suspect]
     Route: 048
     Dates: start: 20080709
  5. ABILIFY [Concomitant]
     Dates: start: 19970101
  6. CLOZARIL [Concomitant]
     Dates: start: 19990101
  7. PAXIL [Concomitant]
     Indication: BIPOLAR DISORDER
     Dates: start: 20080701
  8. TRAZODONE HCL [Concomitant]
     Indication: BIPOLAR DISORDER
     Dates: start: 20080701
  9. AMBIEN [Concomitant]
     Indication: SLEEP DISORDER
     Dates: start: 20080701
  10. XANAX [Concomitant]
     Indication: ANXIETY
     Dates: start: 20080701

REACTIONS (8)
  - BLOOD CHOLESTEROL INCREASED [None]
  - BLOOD TRIGLYCERIDES INCREASED [None]
  - GASTRIC BYPASS [None]
  - GASTROINTESTINAL DISORDER [None]
  - HYPERLIPIDAEMIA [None]
  - OBESITY [None]
  - TYPE 2 DIABETES MELLITUS [None]
  - WEIGHT INCREASED [None]
